FAERS Safety Report 9252166 (Version 1)
Quarter: 2013Q1

REPORT INFORMATION
  Report Type: Spontaneous
  Country: US (occurrence: None)
  Receive Date: 20130305
  Receipt Date: 20130305
  Transmission Date: 20140127
  Serious: Yes (Hospitalization)
  Sender: FDA-Public Use
  Company Number: 163-21880-12083389

PATIENT
  Age: 69 Year
  Sex: Male
  Weight: 95.26 kg

DRUGS (21)
  1. REVLIMID [Suspect]
     Indication: MYELODYSPLASTIC SYNDROME
     Dosage: 5 MG, 1 IN 2 D
     Route: 048
     Dates: start: 20070131
  2. CELEBREX (CELECOXIB) [Suspect]
  3. DRONABINOL [Suspect]
  4. FINASTERIDE (FINASTERIDE) [Suspect]
  5. FLOMAX [Suspect]
  6. HUMALOG (INSULIN LISPRO) [Suspect]
  7. HYDROCODONE (HYDROCODONE) [Suspect]
  8. LANTUS (INSULIN GLARGINE) [Suspect]
  9. MORPHINE [Suspect]
  10. VITAMINS [Suspect]
  11. NEURONTIN (GABAPENTIN) [Suspect]
  12. NITROFURANTOIN MONOHYDRATE/ MACROCRYSTALLINE [Suspect]
  13. PRILOSEC [Suspect]
  14. SOMA (CARISOPRODOL) [Suspect]
  15. TERBINAFINE (TERBINAFINE) [Suspect]
  16. ACETAMINOPHEN\HYDROCODONE BITARTRATE [Suspect]
  17. MS CONTIN [Suspect]
  18. MARINOL [Suspect]
  19. MACRODANTIN [Suspect]
  20. LAMISIL [Suspect]
  21. PROSCAR [Suspect]

REACTIONS (1)
  - Bradycardia [None]
